FAERS Safety Report 22296045 (Version 5)
Quarter: 2024Q2

REPORT INFORMATION
  Report Type: Spontaneous
  Country: US (occurrence: US)
  Receive Date: 20230508
  Receipt Date: 20240627
  Transmission Date: 20240715
  Serious: No
  Sender: FDA-Public Use
  Company Number: US-BRISTOL-MYERS SQUIBB COMPANY-2023-065198

PATIENT
  Age: 84 Year
  Sex: Male
  Weight: 95.71 kg

DRUGS (1)
  1. POMALYST [Suspect]
     Active Substance: POMALIDOMIDE
     Indication: Plasma cell myeloma
     Dosage: FREQUENCY - DAILY FOR 14 DAYS, THAN 14 DAYS OFF, 2WKSON,2WKOFF
     Route: 048

REACTIONS (7)
  - Sunburn [Recovering/Resolving]
  - Off label use [Unknown]
  - Hypoaesthesia oral [Unknown]
  - Eye irritation [Unknown]
  - Lacrimation increased [Unknown]
  - Skin tightness [Unknown]
  - Faeces discoloured [Recovering/Resolving]
